FAERS Safety Report 6068718-5 (Version None)
Quarter: 2009Q1

REPORT INFORMATION
  Report Type: 
  Country: None (occurrence: None)
  Receive Date: 20090206
  Receipt Date: 20090204
  Transmission Date: 20090719
  Serious: Yes (Hospitalization)
  Sender: FDA-Public Use
  Company Number: B0557563A

PATIENT
  Age: 32 Year
  Sex: Female

DRUGS (2)
  1. ARIXTRA [Suspect]
     Indication: THROMBOSIS PROPHYLAXIS
     Route: 058
     Dates: start: 20081001
  2. FRAXIPARINE [Suspect]
     Indication: THROMBOSIS
     Dosage: 1INJ TWICE PER DAY
     Route: 058
     Dates: start: 20080619, end: 20080101

REACTIONS (7)
  - ANTEPARTUM HAEMORRHAGE [None]
  - DRUG EXPOSURE DURING PREGNANCY [None]
  - DRUG INTOLERANCE [None]
  - LIVE BIRTH [None]
  - PAIN [None]
  - PREMATURE LABOUR [None]
  - RASH PAPULAR [None]
